FAERS Safety Report 8130093 (Version 6)
Quarter: 2014Q1

REPORT INFORMATION
  Report Type: Report from Study
  Country: DE (occurrence: DE)
  Receive Date: 20110912
  Receipt Date: 20140117
  Transmission Date: 20141002
  Serious: Yes (Hospitalization)
  Sender: FDA-Public Use
  Company Number: DE-JNJFOC-20110901171

PATIENT
  Age: 49 Year
  Sex: Female
  Weight: 46 kg

DRUGS (7)
  1. USTEKINUMAB [Suspect]
     Indication: PSORIASIS
     Route: 058
     Dates: start: 20100324, end: 20101101
  2. CALCIUM [Concomitant]
     Route: 048
  3. AMINEURIN [Concomitant]
     Route: 048
  4. PANTOZOL [Concomitant]
     Route: 048
  5. FLUOXETIN [Concomitant]
     Route: 048
  6. SIMVAHEXAL [Concomitant]
     Route: 048
  7. DICLOFENAC [Concomitant]
     Route: 048

REACTIONS (5)
  - Psoriasis [Recovered/Resolved]
  - Renal impairment [Recovered/Resolved]
  - Night sweats [Unknown]
  - Weight decreased [Unknown]
  - Arthralgia [Unknown]
